FAERS Safety Report 21830446 (Version 1)
Quarter: 2023Q1

REPORT INFORMATION
  Report Type: Spontaneous
  Country: US (occurrence: None)
  Receive Date: 20230106
  Receipt Date: 20230106
  Transmission Date: 20230418
  Serious: No
  Sender: FDA-Public Use
  Company Number: 2022A420539

PATIENT
  Sex: Female

DRUGS (1)
  1. EVUSHELD [Suspect]
     Active Substance: CILGAVIMAB\TIXAGEVIMAB
     Indication: Acquired immunodeficiency syndrome
     Dosage: 150.0MG ONCE/SINGLE ADMINISTRATION
     Route: 030
     Dates: start: 20221228

REACTIONS (2)
  - COVID-19 [Unknown]
  - Medication error [Unknown]

NARRATIVE: CASE EVENT DATE: 20221228
